FAERS Safety Report 14772064 (Version 1)
Quarter: 2018Q2

REPORT INFORMATION
  Report Type: Report from Study
  Country: None (occurrence: US)
  Receive Date: 20180417
  Receipt Date: 20180417
  Transmission Date: 20180711
  Serious: Yes (Other)
  Sender: FDA-Public Use
  Company Number: US-ABBVIE-18K-163-2274007-00

PATIENT
  Age: 83 Year
  Sex: Female

DRUGS (6)
  1. RIFAPENTINE [Suspect]
     Active Substance: RIFAPENTINE
     Indication: MYCOBACTERIUM TUBERCULOSIS COMPLEX TEST POSITIVE
     Route: 065
     Dates: start: 20180308
  2. HUMIRA [Suspect]
     Active Substance: ADALIMUMAB
     Indication: RHEUMATOID ARTHRITIS
     Route: 058
     Dates: start: 2013, end: 2017
  3. HUMIRA [Suspect]
     Active Substance: ADALIMUMAB
     Route: 058
     Dates: start: 2017, end: 201802
  4. CLARITIN [Concomitant]
     Active Substance: LORATADINE
     Indication: ARTHRALGIA
  5. ISONIAZID. [Suspect]
     Active Substance: ISONIAZID
     Indication: MYCOBACTERIUM TUBERCULOSIS COMPLEX TEST POSITIVE
     Route: 065
     Dates: start: 20180308
  6. HUMIRA [Suspect]
     Active Substance: ADALIMUMAB
     Route: 058
     Dates: start: 20180412

REACTIONS (11)
  - Rheumatoid arthritis [Recovered/Resolved]
  - Ankle fracture [Recovered/Resolved with Sequelae]
  - Fall [Recovered/Resolved]
  - Pain in extremity [Recovered/Resolved]
  - Mycobacterium tuberculosis complex test positive [Not Recovered/Not Resolved]
  - Fatigue [Not Recovered/Not Resolved]
  - Headache [Recovered/Resolved]
  - Lymphadenopathy [Not Recovered/Not Resolved]
  - Fall [Recovered/Resolved]
  - Fracture malunion [Not Recovered/Not Resolved]
  - Balance disorder [Not Recovered/Not Resolved]

NARRATIVE: CASE EVENT DATE: 2016
